FAERS Safety Report 6425096-7 (Version None)
Quarter: 2009Q4

REPORT INFORMATION
  Report Type: 
  Country: None (occurrence: None)
  Receive Date: 20091103
  Receipt Date: 20091022
  Transmission Date: 20100525
  Serious: Yes (Other)
  Sender: FDA-Public Use
  Company Number: CA-PFIZER INC-2009287857

PATIENT
  Age: 54 Year
  Sex: Male

DRUGS (4)
  1. SOMAVERT [Suspect]
     Indication: ACROMEGALY
     Dosage: 15 MG, UNK
     Dates: start: 20060501
  2. SYNTHROID [Concomitant]
  3. CORTEF [Concomitant]
  4. TESTOSTERONE CIPIONATE [Concomitant]

REACTIONS (1)
  - BLADDER CANCER [None]
